FAERS Safety Report 9845408 (Version 1)
Quarter: 2013Q4

REPORT INFORMATION
  Report Type: Spontaneous
  Country: US (occurrence: None)
  Receive Date: 20131219
  Receipt Date: 20131219
  Transmission Date: 20140711
  Serious: Yes (Other)
  Sender: FDA-Public Use
  Company Number: 163-21880-12112289

PATIENT
  Age: 64 Year
  Sex: Female

DRUGS (2)
  1. REVLIMID (LENALIDOMIDE) (10 MILLIGRAM, CAPSULES) [Suspect]
     Indication: PLASMA CELL MYELOMA
     Dosage: 10 MG,  MON, WED, AND FRI, PO
     Dates: start: 20071113, end: 2009
  2. THALIDOMID [Suspect]
     Indication: PLASMA CELL MYELOMA
     Dosage: 50 MG , SUN, TUES, THURS AND SAT, PO
     Route: 048
     Dates: start: 20091231

REACTIONS (2)
  - Plasma cell myeloma [None]
  - Drug dose omission [None]
